FAERS Safety Report 5867044-4 (Version None)
Quarter: 2008Q3

REPORT INFORMATION
  Report Type: 
  Country: None (occurrence: None)
  Receive Date: 20080902
  Receipt Date: 20080827
  Transmission Date: 20090109
  Serious: Yes (Other)
  Sender: FDA-Public Use
  Company Number: B0521993A

PATIENT
  Age: 74 Year
  Sex: Male

DRUGS (3)
  1. PAXIL [Suspect]
     Indication: PANIC DISORDER
     Dosage: 10MG PER DAY
     Route: 048
     Dates: start: 20080501, end: 20080519
  2. UNKNOWN MEDICATION [Concomitant]
     Indication: PANIC DISORDER
     Dosage: 1.5MG PER DAY
     Route: 048
     Dates: start: 20080515, end: 20080519
  3. MYSLEE [Concomitant]
     Indication: INSOMNIA
     Dosage: 5MG PER DAY
     Route: 048
     Dates: start: 20080515, end: 20080518

REACTIONS (2)
  - CATARACT [None]
  - DIPLOPIA [None]
